FAERS Safety Report 6827097-3 (Version None)
Quarter: 2010Q3

REPORT INFORMATION
  Report Type: 
  Country: None (occurrence: None)
  Receive Date: 20100709
  Receipt Date: 20100702
  Transmission Date: 20110219
  Serious: Yes (Hospitalization, Other)
  Sender: FDA-Public Use
  Company Number: US-AMGEN-QUU416972

PATIENT
  Sex: Male
  Weight: 108 kg

DRUGS (10)
  1. NPLATE [Suspect]
     Indication: IDIOPATHIC THROMBOCYTOPENIC PURPURA
     Route: 058
     Dates: start: 20090403
  2. MYCOPHENOLATE MOFETIL [Concomitant]
     Dates: start: 20100501
  3. UNSPECIFIED MEDICATION [Concomitant]
  4. RITUXAN [Concomitant]
  5. PREDNISONE [Concomitant]
  6. POLYGAM S/D [Concomitant]
  7. NORMAL SALINE [Concomitant]
  8. BENADRYL [Concomitant]
  9. TYLENOL [Concomitant]
  10. DECADRON [Concomitant]
     Route: 042

REACTIONS (5)
  - ACUTE MYELOID LEUKAEMIA [None]
  - ASPIRATION BONE MARROW ABNORMAL [None]
  - HYPERHIDROSIS [None]
  - LYMPHOCYTOSIS [None]
  - MALAISE [None]
